FAERS Safety Report 12581780 (Version 2)
Quarter: 2017Q1

REPORT INFORMATION
  Report Type: Spontaneous
  Country: IT (occurrence: IT)
  Receive Date: 20160722
  Receipt Date: 20170123
  Transmission Date: 20170428
  Serious: Yes (Other)
  Sender: FDA-Public Use
  Company Number: IT-JNJFOC-20160712732

PATIENT
  Age: 20 Year
  Sex: Male
  Weight: 65 kg

DRUGS (6)
  1. REACTINE [Suspect]
     Active Substance: CETIRIZINE HYDROCHLORIDE
     Indication: PRODUCT USED FOR UNKNOWN INDICATION
     Route: 048
  2. CANNABIS [Suspect]
     Active Substance: CANNABIS SATIVA SUBSP. INDICA TOP
     Indication: DRUG ABUSE
     Route: 065
     Dates: start: 20160713
  3. COCAINE [Suspect]
     Active Substance: COCAINE
     Indication: DRUG ABUSE
     Route: 065
     Dates: start: 20160713
  4. REACTINE [Suspect]
     Active Substance: CETIRIZINE HYDROCHLORIDE
     Indication: PRODUCT USED FOR UNKNOWN INDICATION
     Route: 048
     Dates: start: 20160713
  5. KETAMINE [Suspect]
     Active Substance: KETAMINE
     Indication: DRUG ABUSE
     Route: 065
     Dates: start: 20160713
  6. ALL OTHER THERAPEUTIC PRODUCTS [Suspect]
     Active Substance: UNSPECIFIED INGREDIENT
     Indication: DRUG ABUSE
     Route: 065
     Dates: start: 20160713

REACTIONS (1)
  - Ventricular fibrillation [Unknown]

NARRATIVE: CASE EVENT DATE: 20160713
